FAERS Safety Report 17811194 (Version 9)
Quarter: 2020Q4

REPORT INFORMATION
  Report Type: Report from Study
  Country: US (occurrence: US)
  Receive Date: 20200521
  Receipt Date: 20201217
  Transmission Date: 20210113
  Serious: No
  Sender: FDA-Public Use
  Company Number: NVSC2020US139252

PATIENT
  Age: 70 Year
  Sex: Male

DRUGS (2)
  1. COSENTYX [Suspect]
     Active Substance: SECUKINUMAB
     Indication: PSORIASIS
     Dosage: 150 MG, (ONCE WEEKLY FOR 5 WEEKS (LOADING), THEN ONCE EVERY 4 WEEKS (MAINTAINANCE))
     Route: 058
     Dates: start: 20200331
  2. COSENTYX [Suspect]
     Active Substance: SECUKINUMAB
     Indication: PSORIATIC ARTHROPATHY

REACTIONS (9)
  - Glossodynia [Unknown]
  - Pain [Unknown]
  - Skin disorder [Unknown]
  - Psoriasis [Unknown]
  - Stomatitis [Unknown]
  - Oral candidiasis [Unknown]
  - Breakthrough pain [Unknown]
  - Glossitis [Unknown]
  - Oral herpes [Unknown]

NARRATIVE: CASE EVENT DATE: 202009
